FAERS Safety Report 8301095-5 (Version None)
Quarter: 2012Q2

REPORT INFORMATION
  Report Type: 
  Country: None (occurrence: None)
  Receive Date: 20120420
  Receipt Date: 20120417
  Transmission Date: 20120825
  Serious: Yes (Hospitalization)
  Sender: FDA-Public Use
  Company Number: BE-AMGEN-BELSP2012012759

PATIENT
  Age: 66 Year
  Sex: Male

DRUGS (3)
  1. GLUCOPHAGE [Concomitant]
  2. CORTISONE ACETATE [Concomitant]
     Dosage: 24 MG, QD
  3. NPLATE [Suspect]
     Indication: IDIOPATHIC THROMBOCYTOPENIC PURPURA
     Dosage: 500 MUG, UNK
     Dates: start: 20110401

REACTIONS (4)
  - BACK PAIN [None]
  - ASTHENIA [None]
  - PLATELET COUNT DECREASED [None]
  - PAIN IN EXTREMITY [None]
